FAERS Safety Report 4304051-7 (Version None)
Quarter: 2004Q1

REPORT INFORMATION
  Report Type: 
  Country: None (occurrence: None)
  Receive Date: 20040223
  Receipt Date: 20031110
  Transmission Date: 20041129
  Serious: No
  Sender: FDA-Public Use
  Company Number: PHEH2003US09554

PATIENT
  Age: 56 Year
  Sex: Female
  Weight: 83.4 kg

DRUGS (5)
  1. ZELNORM [Suspect]
     Dosage: 6 MG, BID
     Dates: start: 20030826, end: 20031001
  2. MONOPRIL [Concomitant]
  3. PREVACID [Concomitant]
  4. EFFEXOR [Concomitant]
  5. LACTAID (TILACTASE) [Concomitant]

REACTIONS (2)
  - ABDOMINAL DISTENSION [None]
  - ABDOMINAL PAIN [None]
